FAERS Safety Report 7859597-1 (Version None)
Quarter: 2011Q4

REPORT INFORMATION
  Report Type: 
  Country: None (occurrence: None)
  Receive Date: 20111027
  Receipt Date: 20111021
  Transmission Date: 20120403
  Serious: Yes (Hospitalization, Other)
  Sender: FDA-Public Use
  Company Number: GB-PFIZER INC-2011258552

PATIENT
  Age: 76 Year
  Sex: Male

DRUGS (9)
  1. EFFEXOR XR [Suspect]
     Dosage: 75 MG
  2. VALSARTAN [Concomitant]
     Indication: HYPERTENSION
  3. AMLODIPINE [Concomitant]
     Indication: HYPERTENSION
     Dosage: 5 MG
  4. MIRTAZAPINE [Interacting]
     Dosage: 45 MG
  5. MIRTAZAPINE [Interacting]
     Dosage: 60 MG
  6. MIRTAZAPINE [Interacting]
     Dosage: 15 MG
     Dates: start: 20050101
  7. MIRTAZAPINE [Interacting]
     Dosage: 30 MG
  8. BENDROFLUAZIDE [Interacting]
     Indication: HYPERTENSION
  9. LORAZEPAM [Concomitant]
     Dosage: 1 MG

REACTIONS (5)
  - URINARY HESITATION [None]
  - SYNCOPE [None]
  - HEAD INJURY [None]
  - BLOOD SODIUM DECREASED [None]
  - DRUG INTERACTION [None]
